FAERS Safety Report 4569296-X (Version None)
Quarter: 2005Q1

REPORT INFORMATION
  Report Type: 
  Country: None (occurrence: None)
  Receive Date: 20050203
  Receipt Date: 20041120
  Transmission Date: 20050727
  Serious: Yes (Hospitalization, Other)
  Sender: FDA-Public Use
  Company Number: PHEH2004US12623

PATIENT
  Age: 66 Year
  Sex: Female

DRUGS (7)
  1. CATAPRES-TTS-2 [Concomitant]
  2. PROZAC [Concomitant]
     Indication: DEPRESSION
  3. WELLBUTRIN SR [Concomitant]
  4. CRESTOR [Concomitant]
  5. DIOVAN HCT [Suspect]
     Indication: HYPERTENSION
     Dosage: UNK, UNK
     Route: 048
     Dates: start: 20041101
  6. LEVOTHYROXINE [Concomitant]
  7. ATENOLOL [Concomitant]

REACTIONS (4)
  - BLOOD PRESSURE INADEQUATELY CONTROLLED [None]
  - BLOOD PRESSURE INCREASED [None]
  - INTRACARDIAC THROMBUS [None]
  - TRANSIENT ISCHAEMIC ATTACK [None]
